FAERS Safety Report 7191914-0 (Version None)
Quarter: 2010Q4

REPORT INFORMATION
  Report Type: 
  Country: None (occurrence: None)
  Receive Date: 20101223
  Receipt Date: 20100820
  Transmission Date: 20110411
  Serious: No
  Sender: FDA-Public Use
  Company Number: US-AMGEN-KDL432896

PATIENT

DRUGS (6)
  1. ENBREL [Suspect]
     Indication: PRODUCT USED FOR UNKNOWN INDICATION
     Dosage: 25 MG, 2 TIMES/WK
     Route: 058
  2. AMLODIPINE BESYLATE [Concomitant]
     Dosage: 2.5 MG, UNK
  3. LEFLUNOMIDE [Concomitant]
     Dosage: 10 MG, UNK
  4. ESOMEPRAZOLE MAGNESIUM [Concomitant]
     Dosage: 20 MG, UNK
  5. CLOPIDOGREL BISULFATE [Concomitant]
     Dosage: 75 MG, UNK
  6. MULTI-VITAMINS [Concomitant]
     Dosage: UNK UNK, UNK

REACTIONS (1)
  - PSORIASIS [None]
